FAERS Safety Report 7903136-3 (Version None)
Quarter: 2011Q4

REPORT INFORMATION
  Report Type: 
  Country: None (occurrence: None)
  Receive Date: 20111107
  Receipt Date: 20111021
  Transmission Date: 20120403
  Serious: Yes (Death)
  Sender: FDA-Public Use
  Company Number: DSA_47947_2011

PATIENT
  Age: 81 Year
  Sex: Female

DRUGS (1)
  1. ENALAPRIL MALEATE [Suspect]
     Indication: PRODUCT USED FOR UNKNOWN INDICATION
     Dosage: 5 MG, DAILY ORAL
     Route: 048
     Dates: start: 20110201, end: 20110301

REACTIONS (2)
  - SEPSIS [None]
  - TOXIC EPIDERMAL NECROLYSIS [None]
